FAERS Safety Report 8786645 (Version 1)
Quarter: 2012Q4

REPORT INFORMATION
  Report Type: 
  Country: GB (occurrence: GB)
  Receive Date: 20120914
  Receipt Date: 20120914
  Transmission Date: 20130627
  Serious: Yes (Life-Threatening)
  Sender: FDA-Public Use
  Company Number: PHHY2012GB079081

PATIENT
  Age: 50 Year
  Sex: Male
  Weight: 81 kg

DRUGS (8)
  1. 5-FLUOROURACIL [Suspect]
     Indication: COLON CANCER METASTATIC
     Route: 042
     Dates: start: 20120710, end: 20120823
  2. ATROPINE SULFATE [Concomitant]
     Dosage: 250 ug
     Route: 058
  3. DEXAMETHASONE [Concomitant]
     Dosage: 4 mg
  4. GRANISETRON [Concomitant]
     Dosage: 3 mg
     Route: 042
  5. IRINOTECAN [Concomitant]
     Dosage: 350 mg
  6. LOPERAMIDE [Concomitant]
     Dosage: 2 mg, as necessary
  7. METOCLOPRAMIDE [Concomitant]
     Dosage: 10 mg, TID
  8. TAMSULOSIN [Concomitant]
     Dosage: 400 ug, QD

REACTIONS (8)
  - Atrial fibrillation [Unknown]
  - Syncope [Unknown]
  - Cardiac arrest [Recovered/Resolved]
  - Left ventricular dysfunction [Unknown]
  - Acute myocardial infarction [Unknown]
  - Electrocardiogram T wave abnormal [Unknown]
  - Electrocardiogram ST segment elevation [Unknown]
  - Hyperhidrosis [Unknown]
